FAERS Safety Report 6858436-5 (Version None)
Quarter: 2010Q3

REPORT INFORMATION
  Report Type: 
  Country: None (occurrence: None)
  Receive Date: 20100719
  Receipt Date: 20080208
  Transmission Date: 20110219
  Serious: No
  Sender: FDA-Public Use
  Company Number: US-PFIZER INC-2008013724

PATIENT
  Sex: Female
  Weight: 83.6 kg

DRUGS (5)
  1. CHANTIX [Suspect]
     Indication: SMOKING CESSATION THERAPY
     Dates: start: 20070401, end: 20070519
  2. OMEPRAZOLE [Concomitant]
  3. DRUG, UNSPECIFIED [Concomitant]
  4. SEREVENT [Concomitant]
  5. MULTI-VITAMINS [Concomitant]

REACTIONS (2)
  - DEPRESSION [None]
  - IRRITABILITY [None]
